FAERS Safety Report 9714308 (Version 1)
Quarter: 2013Q4

REPORT INFORMATION
  Report Type: Spontaneous
  Country: BR (occurrence: BR)
  Receive Date: 20131126
  Receipt Date: 20131126
  Transmission Date: 20140711
  Serious: Yes (Death)
  Sender: FDA-Public Use
  Company Number: BR-VERTEX PHARMACEUTICALS INC-2013-011389

PATIENT
  Age: 57 Year
  Sex: Male

DRUGS (1)
  1. INCIVO [Suspect]
     Indication: HEPATITIS C
     Route: 048
     Dates: start: 201310

REACTIONS (1)
  - Death [Fatal]
